FAERS Safety Report 22677368 (Version 8)
Quarter: 2023Q4

REPORT INFORMATION
  Report Type: Report from Study
  Country: US (occurrence: US)
  Receive Date: 20230706
  Receipt Date: 20231211
  Transmission Date: 20240110
  Serious: Yes (Hospitalization)
  Sender: FDA-Public Use
  Company Number: US-ARGENX-2023-ARGX-US000710

PATIENT

DRUGS (5)
  1. VYVGART [Suspect]
     Active Substance: EFGARTIGIMOD ALFA-FCAB
     Indication: Myasthenia gravis
     Dosage: 10 MG/KG
     Route: 042
     Dates: start: 20221111
  2. VYVGART [Suspect]
     Active Substance: EFGARTIGIMOD ALFA-FCAB
     Dosage: UNK
     Route: 042
     Dates: start: 20230622
  3. VYVGART [Suspect]
     Active Substance: EFGARTIGIMOD ALFA-FCAB
     Dosage: 10 MG/KG
     Route: 042
  4. VICKS NYQUIL [Interacting]
     Active Substance: ACETAMINOPHEN\DEXTROMETHORPHAN HYDROBROMIDE\DOXYLAMINE SUCCINATE
     Indication: Product used for unknown indication
     Dosage: UNK
     Route: 065
  5. PREDNISONE [Concomitant]
     Active Substance: PREDNISONE
     Indication: Product used for unknown indication
     Dosage: 2.5 MG
     Route: 065

REACTIONS (33)
  - Myasthenia gravis crisis [Unknown]
  - Insomnia [Not Recovered/Not Resolved]
  - Oropharyngeal pain [Unknown]
  - Restlessness [Not Recovered/Not Resolved]
  - Drug interaction [Unknown]
  - Cough [Not Recovered/Not Resolved]
  - Sinusitis [Unknown]
  - Lower respiratory tract infection [Unknown]
  - Klebsiella infection [Unknown]
  - Pruritus [Unknown]
  - Urinary tract infection [Unknown]
  - Therapeutic product effect decreased [Unknown]
  - Symptom recurrence [Unknown]
  - Vision blurred [Unknown]
  - Diplopia [Unknown]
  - Eyelid ptosis [Unknown]
  - Iridodonesis [Unknown]
  - Productive cough [Unknown]
  - Post procedural haemorrhage [Unknown]
  - Contusion [Unknown]
  - Blister [Unknown]
  - Myasthenia gravis [Unknown]
  - Psoriasis [Unknown]
  - Stress [Unknown]
  - Anxiety [Unknown]
  - White blood cell count increased [Unknown]
  - Neutrophil count increased [Unknown]
  - Pruritus [Unknown]
  - Rash [Unknown]
  - Dyspnoea [Not Recovered/Not Resolved]
  - Dysphagia [Not Recovered/Not Resolved]
  - Speech disorder [Not Recovered/Not Resolved]
  - Malaise [Not Recovered/Not Resolved]

NARRATIVE: CASE EVENT DATE: 20221112
